FAERS Safety Report 9131094 (Version 2)
Quarter: 2013Q1

REPORT INFORMATION
  Report Type: Spontaneous
  Country: ES (occurrence: US)
  Receive Date: 20130301
  Receipt Date: 20130306
  Transmission Date: 20140127
  Serious: Yes (Other)
  Sender: FDA-Public Use
  Company Number: US-PFIZER INC-2013069300

PATIENT
  Age: 36 Year
  Sex: Female
  Weight: 122 kg

DRUGS (1)
  1. PHENYTOIN SODIUM [Suspect]
     Indication: GRAND MAL CONVULSION
     Dosage: 1000 MG
     Route: 042

REACTIONS (7)
  - Overdose [Recovered/Resolved]
  - Ophthalmoplegia [Recovered/Resolved]
  - Coma [Recovered/Resolved]
  - Dysarthria [Recovered/Resolved]
  - Lethargy [Recovered/Resolved]
  - Nystagmus [Recovered/Resolved]
  - Somnolence [Not Recovered/Not Resolved]
